FAERS Safety Report 23601797 (Version 1)
Quarter: 2024Q1

REPORT INFORMATION
  Report Type: Spontaneous
  Country: US (occurrence: US)
  Receive Date: 20240306
  Receipt Date: 20240306
  Transmission Date: 20240410
  Serious: No
  Sender: FDA-Public Use
  Company Number: US-BIOGEN-2023BI01239540

PATIENT
  Sex: Male

DRUGS (3)
  1. SKYCLARYS [Suspect]
     Active Substance: OMAVELOXOLONE
     Indication: Friedreich^s ataxia
     Route: 050
     Dates: start: 20230713, end: 20230725
  2. SKYCLARYS [Suspect]
     Active Substance: OMAVELOXOLONE
     Dosage: 2 DOSAGES
     Route: 050
     Dates: start: 2023
  3. SKYCLARYS [Suspect]
     Active Substance: OMAVELOXOLONE
     Dosage: 2 TABLETS
     Route: 050

REACTIONS (15)
  - Speech disorder [Unknown]
  - Urinary incontinence [Unknown]
  - Somnolence [Unknown]
  - Dizziness [Unknown]
  - Brain fog [Unknown]
  - Anal incontinence [Unknown]
  - Orgasm abnormal [Unknown]
  - Confusional state [Unknown]
  - Fall [Unknown]
  - Dyspepsia [Unknown]
  - Hypersensitivity [Unknown]
  - Insomnia [Unknown]
  - Diarrhoea [Unknown]
  - Abdominal pain upper [Unknown]
  - Asthenia [Unknown]
